FAERS Safety Report 20043704 (Version 3)
Quarter: 2022Q1

REPORT INFORMATION
  Report Type: Spontaneous
  Country: US (occurrence: None)
  Receive Date: 20211108
  Receipt Date: 20220113
  Transmission Date: 20220423
  Serious: No
  Sender: FDA-Public Use
  Company Number: 2021A779201

PATIENT
  Age: 25714 Day
  Sex: Female
  Weight: 83.5 kg

DRUGS (4)
  1. FARXIGA [Suspect]
     Active Substance: DAPAGLIFLOZIN PROPANEDIOL
     Indication: Type 2 diabetes mellitus
     Route: 048
     Dates: start: 20211017, end: 20211112
  2. FARXIGA [Suspect]
     Active Substance: DAPAGLIFLOZIN PROPANEDIOL
     Indication: Type 2 diabetes mellitus
     Route: 048
  3. ZINC [Concomitant]
     Active Substance: ZINC
     Route: 065
  4. CORONA VACCINE [Concomitant]
     Route: 065

REACTIONS (8)
  - Paraesthesia [Unknown]
  - Chest discomfort [Unknown]
  - Feeling abnormal [Unknown]
  - Flushing [Unknown]
  - Hypoaesthesia [Unknown]
  - Fatigue [Unknown]
  - Confusional state [Unknown]
  - Blood glucose abnormal [Unknown]

NARRATIVE: CASE EVENT DATE: 20211017
